FAERS Safety Report 7627639-4 (Version None)
Quarter: 2011Q3

REPORT INFORMATION
  Report Type: 
  Country: None (occurrence: None)
  Receive Date: 20110713
  Receipt Date: 20110627
  Transmission Date: 20111222
  Serious: Yes (Hospitalization)
  Sender: FDA-Public Use
  Company Number: TCI2011A03585

PATIENT
  Age: 59 Year
  Sex: Male

DRUGS (4)
  1. GLUPAST (MITIGLINIDE CALCIUM) [Concomitant]
  2. NU-LOTAN (LOSARTAN POTASSIIUM) [Concomitant]
  3. AMLODIPINE BESYLATE [Concomitant]
  4. ACTOS [Suspect]
     Dosage: 15 MG (15 MG, 1 IN 1 D), PER ORAL
     Route: 048
     Dates: start: 20081115

REACTIONS (4)
  - PROSTATIC SPECIFIC ANTIGEN INCREASED [None]
  - HAEMATURIA [None]
  - PROSTATITIS [None]
  - BLADDER CANCER [None]
